FAERS Safety Report 13235059 (Version 4)
Quarter: 2017Q2

REPORT INFORMATION
  Report Type: Spontaneous
  Country: GB (occurrence: GB)
  Receive Date: 20170215
  Receipt Date: 20170623
  Transmission Date: 20170830
  Serious: Yes (Other)
  Sender: FDA-Public Use
  Company Number: GB-SA-2017SA023648

PATIENT
  Age: 9 Year
  Sex: Female

DRUGS (1)
  1. MYOZYME [Suspect]
     Active Substance: ALGLUCOSIDASE ALFA
     Route: 041

REACTIONS (6)
  - Pain [Unknown]
  - Oxygen saturation decreased [Unknown]
  - Gastrostomy [Unknown]
  - Increased bronchial secretion [Unknown]
  - Lower respiratory tract infection [Unknown]
  - Tracheostomy [Unknown]

NARRATIVE: CASE EVENT DATE: 20170208
